FAERS Safety Report 6844326-0 (Version None)
Quarter: 2010Q2

REPORT INFORMATION
  Report Type: 
  Country: None (occurrence: None)
  Receive Date: 20100629
  Receipt Date: 20100330
  Transmission Date: 20101027
  Serious: No
  Sender: FDA-Public Use
  Company Number: US-WYE-H14404310

PATIENT
  Age: 68 Year
  Sex: Female
  Weight: 63.56 kg

DRUGS (5)
  1. PRISTIQ [Suspect]
     Indication: ANXIETY
     Dosage: 50 MG 1X PER 1 DAY, ORAL
     Route: 048
     Dates: start: 20100314, end: 20100328
  2. PRISTIQ [Suspect]
     Indication: DEPRESSION
     Dosage: 50 MG 1X PER 1 DAY, ORAL
     Route: 048
     Dates: start: 20100314, end: 20100328
  3. PLAQUENIL [Concomitant]
  4. ESTRADIOL [Concomitant]
  5. LIBRAX [Concomitant]

REACTIONS (3)
  - BURNING SENSATION [None]
  - SOMNOLENCE [None]
  - THROAT IRRITATION [None]
